FAERS Safety Report 19843777 (Version 3)
Quarter: 2022Q1

REPORT INFORMATION
  Report Type: Report from Study
  Country: US (occurrence: US)
  Receive Date: 20210917
  Receipt Date: 20220316
  Transmission Date: 20220423
  Serious: No
  Sender: FDA-Public Use
  Company Number: US-NOVARTISTESTPH-NVSC2021US210743

PATIENT
  Age: 56 Year
  Sex: Female

DRUGS (1)
  1. KESIMPTA [Suspect]
     Active Substance: OFATUMUMAB
     Indication: Multiple sclerosis
     Dosage: UNK
     Route: 058
     Dates: start: 20210910

REACTIONS (10)
  - Pain [Recovered/Resolved]
  - Dizziness [Recovered/Resolved]
  - Tremor [Recovered/Resolved]
  - Cognitive disorder [Not Recovered/Not Resolved]
  - Pain in extremity [Unknown]
  - Fine motor skill dysfunction [Unknown]
  - Vertigo [Recovering/Resolving]
  - Hypoaesthesia oral [Unknown]
  - Stress [Unknown]
  - Dizziness [Recovering/Resolving]

NARRATIVE: CASE EVENT DATE: 20210910
